FAERS Safety Report 5268691-3 (Version None)
Quarter: 2007Q1

REPORT INFORMATION
  Report Type: 
  Country: None (occurrence: None)
  Receive Date: 20061213
  Receipt Date: 20040907
  Transmission Date: 20070707
  Serious: Yes (Other)
  Sender: FDA-Public Use
  Company Number: 2004UW18785

PATIENT
  Sex: Female

DRUGS (1)
  1. IRESSA [Suspect]

REACTIONS (5)
  - DERMATITIS EXFOLIATIVE [None]
  - DRY SKIN [None]
  - PAIN OF SKIN [None]
  - SKIN ATROPHY [None]
  - SKIN CHAPPED [None]
